FAERS Safety Report 4855103-4 (Version None)
Quarter: 2005Q4

REPORT INFORMATION
  Report Type: 
  Country: None (occurrence: None)
  Receive Date: 20051215
  Receipt Date: 20051205
  Transmission Date: 20060501
  Serious: Yes (Hospitalization)
  Sender: FDA-Public Use
  Company Number: US-SANOFI-SYNTHELABO-A03200504027

PATIENT
  Sex: Female
  Weight: 77.1 kg

DRUGS (1)
  1. PLAVIX [Suspect]
     Indication: STENT PLACEMENT
     Dosage: UNK
     Route: 048
     Dates: start: 20050901, end: 20051018

REACTIONS (6)
  - BLINDNESS [None]
  - DIFFICULTY IN WALKING [None]
  - FALL [None]
  - HALLUCINATION [None]
  - HYPOTENSION [None]
  - LARGE INTESTINAL HAEMORRHAGE [None]
